FAERS Safety Report 6520598-7 (Version None)
Quarter: 2009Q4

REPORT INFORMATION
  Report Type: 
  Country: None (occurrence: None)
  Receive Date: 20091229
  Receipt Date: 20091217
  Transmission Date: 20100525
  Serious: Yes (Life-Threatening, Hospitalization, Other)
  Sender: FDA-Public Use
  Company Number: GB-BRISTOL-MYERS SQUIBB COMPANY-14825996

PATIENT
  Age: 39 Year
  Sex: Male

DRUGS (10)
  1. METFORMIN HCL [Suspect]
     Indication: TYPE 2 DIABETES MELLITUS
     Route: 048
     Dates: start: 20090217
  2. LISINOPRIL [Suspect]
     Indication: HYPERTENSION
     Route: 048
     Dates: start: 20090217
  3. CLOMIPRAMINE [Suspect]
     Indication: DEPRESSION
     Route: 048
     Dates: start: 20090217
  4. CLOMIPRAMINE [Suspect]
     Indication: ANXIETY
     Route: 048
     Dates: start: 20090217
  5. CLOZARIL [Suspect]
     Indication: SCHIZOPHRENIA
     Dosage: ALSO ON 17FEB2009
     Route: 048
     Dates: start: 20031202
  6. HYOSCINE [Suspect]
     Dates: start: 20090217
  7. OMEPRAZOLE [Suspect]
     Dates: start: 20090217
  8. SIMVASTATIN [Suspect]
     Indication: BLOOD CHOLESTEROL INCREASED
     Route: 048
     Dates: start: 20090217
  9. THIAMINE [Suspect]
     Route: 048
  10. SENNA [Suspect]
     Indication: CONSTIPATION
     Route: 048

REACTIONS (5)
  - AGITATION [None]
  - COMA SCALE ABNORMAL [None]
  - NEUTROPHIL COUNT INCREASED [None]
  - OVERDOSE [None]
  - WHITE BLOOD CELL COUNT INCREASED [None]
